FAERS Safety Report 5402165-1 (Version None)
Quarter: 2007Q3

REPORT INFORMATION
  Report Type: 
  Country: None (occurrence: None)
  Receive Date: 20070730
  Receipt Date: 20070724
  Transmission Date: 20080115
  Serious: Yes (Death, Hospitalization)
  Sender: FDA-Public Use
  Company Number: 163-21880-07031034

PATIENT
  Age: 60 Year
  Sex: Male

DRUGS (3)
  1. REVLIMID [Suspect]
     Indication: AMYLOIDOSIS
     Dosage: 15 MG, DAILY X 21 DAYS, ORAL; 5 MG, X 21 DAYS, ORAL
     Route: 048
     Dates: start: 20070101, end: 20070501
  2. REVLIMID [Suspect]
     Indication: AMYLOIDOSIS
     Dosage: 15 MG, DAILY X 21 DAYS, ORAL; 5 MG, X 21 DAYS, ORAL
     Route: 048
     Dates: start: 20070501, end: 20070501
  3. REVLIMID [Suspect]

REACTIONS (4)
  - AMYLOIDOSIS [None]
  - CONFUSIONAL STATE [None]
  - DISEASE PROGRESSION [None]
  - SUICIDAL IDEATION [None]
